FAERS Safety Report 21891769 (Version 1)
Quarter: 2023Q1

REPORT INFORMATION
  Report Type: Spontaneous
  Country: CA (occurrence: CA)
  Receive Date: 20230120
  Receipt Date: 20230120
  Transmission Date: 20230418
  Serious: Yes (Death)
  Sender: FDA-Public Use
  Company Number: CA-002147023-NVSC2023CA012663

PATIENT

DRUGS (18)
  1. VENLAFAXINE HYDROCHLORIDE [Suspect]
     Active Substance: VENLAFAXINE HYDROCHLORIDE
     Indication: Depression
     Dosage: UNK
     Route: 065
  2. VENLAFAXINE HYDROCHLORIDE [Suspect]
     Active Substance: VENLAFAXINE HYDROCHLORIDE
     Indication: Bipolar disorder
  3. VENLAFAXINE HYDROCHLORIDE [Suspect]
     Active Substance: VENLAFAXINE HYDROCHLORIDE
     Indication: Anxiety
  4. FENTANYL [Suspect]
     Active Substance: FENTANYL
     Indication: Depression
     Dosage: UNK
     Route: 065
  5. FENTANYL [Suspect]
     Active Substance: FENTANYL
     Indication: Bipolar disorder
  6. FENTANYL [Suspect]
     Active Substance: FENTANYL
     Indication: Anxiety
  7. QUETIAPINE FUMARATE [Suspect]
     Active Substance: QUETIAPINE FUMARATE
     Indication: Depression
     Dosage: UNK
     Route: 065
  8. QUETIAPINE FUMARATE [Suspect]
     Active Substance: QUETIAPINE FUMARATE
     Indication: Bipolar disorder
  9. QUETIAPINE FUMARATE [Suspect]
     Active Substance: QUETIAPINE FUMARATE
     Indication: Anxiety
  10. TRAZODONE [Suspect]
     Active Substance: TRAZODONE HYDROCHLORIDE
     Indication: Depression
     Route: 065
  11. TRAZODONE [Suspect]
     Active Substance: TRAZODONE HYDROCHLORIDE
     Indication: Bipolar disorder
  12. TRAZODONE [Suspect]
     Active Substance: TRAZODONE HYDROCHLORIDE
     Indication: Anxiety
  13. ALCOHOL [Suspect]
     Active Substance: ALCOHOL
     Indication: Depression
     Dosage: UNK
     Route: 065
  14. ALCOHOL [Suspect]
     Active Substance: ALCOHOL
     Indication: Bipolar disorder
  15. ALCOHOL [Suspect]
     Active Substance: ALCOHOL
     Indication: Anxiety
  16. COCAINE [Suspect]
     Active Substance: COCAINE
     Indication: Depression
     Dosage: UNK
     Route: 065
  17. COCAINE [Suspect]
     Active Substance: COCAINE
     Indication: Bipolar disorder
  18. COCAINE [Suspect]
     Active Substance: COCAINE
     Indication: Anxiety

REACTIONS (5)
  - Toxicity to various agents [Fatal]
  - Toxicologic test abnormal [Fatal]
  - Alcohol test positive [Fatal]
  - Opiates positive [Fatal]
  - Drug abuse [Fatal]
